FAERS Safety Report 8280974-1 (Version None)
Quarter: 2012Q2

REPORT INFORMATION
  Report Type: 
  Country: None (occurrence: None)
  Receive Date: 20120412
  Receipt Date: 20120405
  Transmission Date: 20120825
  Serious: Yes (Hospitalization)
  Sender: FDA-Public Use
  Company Number: US-ABBOTT-12P-163-0922338-00

PATIENT
  Age: 44 Year
  Sex: Male

DRUGS (4)
  1. PREDNISONE TAB [Concomitant]
     Indication: PRODUCT USED FOR UNKNOWN INDICATION
  2. HUMIRA [Suspect]
     Indication: CROHN'S DISEASE
     Dates: start: 20120120, end: 20120320
  3. IRON [Concomitant]
     Indication: PRODUCT USED FOR UNKNOWN INDICATION
  4. VITAMIN B-12 [Concomitant]
     Indication: PRODUCT USED FOR UNKNOWN INDICATION

REACTIONS (7)
  - SMALL INTESTINE ULCER [None]
  - MICROCYTIC ANAEMIA [None]
  - CROHN'S DISEASE [None]
  - ILEAL ULCER [None]
  - DRUG INEFFECTIVE [None]
  - LARGE INTESTINAL ULCER [None]
  - RECTAL ULCER [None]
